FAERS Safety Report 12767002 (Version 1)
Quarter: 2016Q3

REPORT INFORMATION
  Report Type: Spontaneous
  Country: US (occurrence: US)
  Receive Date: 20160915
  Receipt Date: 20160915
  Transmission Date: 20161109
  Serious: No
  Sender: FDA-Public Use
  Company Number: None

PATIENT
  Age: 85 Year
  Sex: Female

DRUGS (1)
  1. STIVARGA [Suspect]
     Active Substance: REGORAFENIB
     Indication: PRODUCT USED FOR UNKNOWN INDICATION
     Dosage: STIVARGA 160MG - PO - DAILY FOR 21 DAYS ON, 7 DAYS OFF
     Route: 048
     Dates: start: 20160707, end: 20160726

REACTIONS (1)
  - Hyperbilirubinaemia [None]

NARRATIVE: CASE EVENT DATE: 20160725
